FAERS Safety Report 9851802 (Version 1)
Quarter: 2014Q1

REPORT INFORMATION
  Report Type: Report from Study
  Country: NO (occurrence: NO)
  Receive Date: 20140129
  Receipt Date: 20140129
  Transmission Date: 20141002
  Serious: Yes (Death, Other)
  Sender: FDA-Public Use
  Company Number: NO-ROCHE-1336807

PATIENT
  Age: 48 Year
  Sex: Female

DRUGS (3)
  1. TRASTUZUMAB EMTANSINE [Suspect]
     Indication: BREAST CANCER METASTATIC
     Route: 042
     Dates: start: 20130417, end: 20130920
  2. KALEORID [Concomitant]
     Indication: BLOOD POTASSIUM DECREASED
     Route: 048
  3. COZAAR COMP [Concomitant]
     Indication: HYPERTENSION
     Dosage: 12.5MG/50MG
     Route: 048

REACTIONS (3)
  - Metastases to central nervous system [Fatal]
  - Hypercalcaemia [Unknown]
  - Hyperparathyroidism primary [Unknown]
